FAERS Safety Report 22596508 (Version 2)
Quarter: 2023Q4

REPORT INFORMATION
  Report Type: Report from Study
  Country: US (occurrence: US)
  Receive Date: 20230613
  Receipt Date: 20231221
  Transmission Date: 20240109
  Serious: Yes (Other)
  Sender: FDA-Public Use
  Company Number: US-ABBVIE-5275948

PATIENT
  Sex: Female
  Weight: 62 kg

DRUGS (2)
  1. ARMOUR THYROID [Suspect]
     Active Substance: THYROID, PORCINE
     Indication: Product used for unknown indication
     Dosage: FORM STRENGTH: 60 MILLIGRAM
     Route: 048
     Dates: start: 1994
  2. ARMOUR THYROID [Suspect]
     Active Substance: THYROID, PORCINE
     Indication: Product used for unknown indication
     Dosage: FORM STRENGTH: 60 MILLIGRAM
     Route: 048
     Dates: start: 20231105

REACTIONS (4)
  - Breast cancer metastatic [Unknown]
  - Malaise [Unknown]
  - Thyroid disorder [Unknown]
  - Cataract [Unknown]
